FAERS Safety Report 6080610-9 (Version None)
Quarter: 2009Q1

REPORT INFORMATION
  Report Type: 
  Country: None (occurrence: None)
  Receive Date: 20090217
  Receipt Date: 20090208
  Transmission Date: 20090719
  Serious: Yes (Other)
  Sender: FDA-Public Use
  Company Number: US-AMGEN-KDL330258

PATIENT
  Sex: Female

DRUGS (1)
  1. ENBREL [Suspect]
     Indication: RHEUMATOID ARTHRITIS
     Route: 058
     Dates: start: 20071001

REACTIONS (9)
  - ABASIA [None]
  - ARTHRALGIA [None]
  - CONTUSION [None]
  - GALLBLADDER PAIN [None]
  - HYPOAESTHESIA [None]
  - INFLUENZA [None]
  - LOSS OF CONSCIOUSNESS [None]
  - OEDEMA PERIPHERAL [None]
  - RHEUMATOID ARTHRITIS [None]
